FAERS Safety Report 16145556 (Version 4)
Quarter: 2020Q1

REPORT INFORMATION
  Report Type: Report from Study
  Country: CO (occurrence: CO)
  Receive Date: 20190402
  Receipt Date: 20200211
  Transmission Date: 20200409
  Serious: Yes (Hospitalization, Other)
  Sender: FDA-Public Use
  Company Number: CO-ACTELION-A-CH2019-188562

PATIENT
  Age: 69 Year
  Sex: Female
  Weight: 75 kg

DRUGS (4)
  1. OPSUMIT [Suspect]
     Active Substance: MACITENTAN
     Indication: PULMONARY ARTERIAL HYPERTENSION
     Dosage: 10 MG, QD
     Route: 048
     Dates: start: 20180930
  2. NEBIVOLOL. [Suspect]
     Active Substance: NEBIVOLOL
     Indication: PRODUCT USED FOR UNKNOWN INDICATION
     Dosage: 10 MG
     Route: 065
  3. INDACATEROL [Concomitant]
     Active Substance: INDACATEROL
  4. LOSARTAN. [Concomitant]
     Active Substance: LOSARTAN

REACTIONS (8)
  - Syncope [Not Recovered/Not Resolved]
  - Head injury [Not Recovered/Not Resolved]
  - Malaise [Unknown]
  - Dizziness [Not Recovered/Not Resolved]
  - Arrhythmia [Not Recovered/Not Resolved]
  - Fall [Not Recovered/Not Resolved]
  - Lung disorder [Not Recovered/Not Resolved]
  - Myocardial infarction [Not Recovered/Not Resolved]

NARRATIVE: CASE EVENT DATE: 201903
